FAERS Safety Report 9920298 (Version 1)
Quarter: 2014Q1

REPORT INFORMATION
  Report Type: Spontaneous
  Country: US (occurrence: US)
  Receive Date: 20140224
  Receipt Date: 20140224
  Transmission Date: 20141002
  Serious: Yes (Other)
  Sender: FDA-Public Use
  Company Number: US-ACTAVIS-2014-02899

PATIENT
  Age: 54 Year
  Sex: Female
  Weight: 76 kg

DRUGS (4)
  1. OXYCODONE HYDROCHLORIDE/ACETAMINOPHEN 10/325 MG (WATSON LABORATORIES) [Suspect]
     Indication: RHEUMATOID ARTHRITIS
     Dosage: 1 DF, Q6H
     Route: 048
     Dates: start: 20140207, end: 20140209
  2. OXYCODONE HYDROCHLORIDE/ACETAMINOPHEN 10/325 MG (WATSON LABORATORIES) [Suspect]
     Indication: SPINAL COLUMN STENOSIS
  3. SAVELLA [Concomitant]
     Indication: FIBROMYALGIA
     Dosage: 50 MG, BID
     Route: 048
  4. BENICAR [Concomitant]
     Indication: HYPERTENSION
     Dosage: UNK

REACTIONS (4)
  - Toxicity to various agents [Not Recovered/Not Resolved]
  - Abdominal discomfort [Unknown]
  - Vomiting [Recovered/Resolved]
  - Abdominal tenderness [Not Recovered/Not Resolved]
